FAERS Safety Report 9179532 (Version 1)
Quarter: 2012Q4

REPORT INFORMATION
  Report Type: 
  Country: IN (occurrence: IN)
  Receive Date: 20121029
  Receipt Date: 20121029
  Transmission Date: 20130627
  Serious: Yes (Death)
  Sender: FDA-Public Use
  Company Number: IN-009507513-1210IND011612

PATIENT
  Sex: Male

DRUGS (2)
  1. VIRAFERONPEG [Suspect]
     Indication: HEPATITIS
     Dosage: 50 Microgram, qw
     Route: 048
  2. REBETOL [Concomitant]
     Indication: HEPATITIS

REACTIONS (1)
  - Death [Fatal]
